FAERS Safety Report 6939071-7 (Version None)
Quarter: 2010Q3

REPORT INFORMATION
  Report Type: 
  Country: None (occurrence: None)
  Receive Date: 20100824
  Receipt Date: 20100819
  Transmission Date: 20110219
  Serious: Yes (Other)
  Sender: FDA-Public Use
  Company Number: HU-EISAI INC.-E2090-00831-CLI-HU

PATIENT
  Sex: Female
  Weight: 74 kg

DRUGS (2)
  1. E2090/CARBAMAZEPINE [Suspect]
     Indication: EPILEPSY
     Dosage: DOUBLE-BLIND
     Dates: start: 20090602, end: 20090909
  2. OVIDON [Concomitant]

REACTIONS (2)
  - ABORTION INDUCED [None]
  - DRUG EXPOSURE DURING PREGNANCY [None]
